FAERS Safety Report 5741068-X (Version None)
Quarter: 2008Q2

REPORT INFORMATION
  Report Type: 
  Country: None (occurrence: None)
  Receive Date: 20080516
  Receipt Date: 20080506
  Transmission Date: 20081010
  Serious: Yes (Hospitalization)
  Sender: FDA-Public Use
  Company Number: FR-PFIZER INC-2008039696

PATIENT
  Sex: Male

DRUGS (4)
  1. DEPO-MEDROL [Suspect]
     Indication: PROPHYLACTIC CHEMOTHERAPY
     Dosage: DAILY DOSE:40MG
     Route: 037
     Dates: start: 20070606, end: 20070606
  2. CYTARABINE [Suspect]
     Indication: PROPHYLACTIC CHEMOTHERAPY
     Dosage: DAILY DOSE:40MG
     Route: 037
     Dates: start: 20070606, end: 20070606
  3. METHOTREXATE [Suspect]
     Indication: PROPHYLACTIC CHEMOTHERAPY
     Dosage: DAILY DOSE:15MG
     Route: 037
     Dates: start: 20070606, end: 20070606
  4. ALL OTHER THERAPEUTIC PRODUCTS [Suspect]
     Dates: start: 20070313, end: 20070608

REACTIONS (2)
  - PARAESTHESIA [None]
  - SOMNOLENCE [None]
